FAERS Safety Report 5864280-8 (Version None)
Quarter: 2008Q3

REPORT INFORMATION
  Report Type: 
  Country: None (occurrence: None)
  Receive Date: 20080829
  Receipt Date: 20080820
  Transmission Date: 20090109
  Serious: Yes (Hospitalization, Disabling)
  Sender: FDA-Public Use
  Company Number: DE-AMGEN-US303036

PATIENT
  Sex: Female
  Weight: 78 kg

DRUGS (12)
  1. ENBREL [Suspect]
     Indication: RHEUMATOID ARTHRITIS
     Route: 058
     Dates: start: 20080527, end: 20080812
  2. PREDNISOLONE [Suspect]
     Indication: RHEUMATOID ARTHRITIS
     Route: 065
     Dates: start: 20080530
  3. ENALAPRIL MALEATE AND HYDROCHLOROTHIAZIDE [Suspect]
     Route: 065
     Dates: start: 20031101
  4. ASS ^CT-ARZNEIMITTEL^ [Concomitant]
     Indication: CORONARY ARTERY DISEASE
     Route: 065
     Dates: start: 20031101
  5. METHOTREXATE [Concomitant]
     Indication: RHEUMATOID ARTHRITIS
     Route: 058
     Dates: start: 20031101
  6. FOLIC ACID [Concomitant]
     Route: 065
     Dates: start: 20031101
  7. BISOPROLOL FUMARATE [Concomitant]
     Indication: CORONARY ARTERY DISEASE
     Route: 065
     Dates: start: 20031101
  8. NEXIUM [Concomitant]
     Indication: PROPHYLAXIS
     Route: 065
     Dates: start: 20070801
  9. ACETAMINOPHEN [Concomitant]
     Indication: RHEUMATOID ARTHRITIS
     Dosage: AS NEEDED
     Route: 065
     Dates: start: 20070801
  10. ZOLPIDEM [Concomitant]
     Indication: INSOMNIA
     Route: 065
     Dates: start: 20070801
  11. CALCIUM [Concomitant]
     Indication: OSTEOPOROSIS
     Route: 065
     Dates: start: 20070821
  12. NOVALGIN [Concomitant]
     Indication: RHEUMATOID ARTHRITIS
     Dosage: DROPS AS NEEDED
     Route: 065
     Dates: start: 20060501

REACTIONS (1)
  - RETINAL VEIN THROMBOSIS [None]
